FAERS Safety Report 7979612-4 (Version None)
Quarter: 2011Q4

REPORT INFORMATION
  Report Type: 
  Country: None (occurrence: None)
  Receive Date: 20111214
  Receipt Date: 20111206
  Transmission Date: 20120403
  Serious: Yes (Hospitalization, Other)
  Sender: FDA-Public Use
  Company Number: US-BAYER-2011-096048

PATIENT
  Age: 32 Year
  Sex: Female
  Weight: 53.515 kg

DRUGS (1)
  1. MIRENA [Suspect]
     Indication: CONTRACEPTION
     Dosage: 20 MCG/24HR, CONT
     Route: 015
     Dates: start: 20090910, end: 20090923

REACTIONS (16)
  - PARAESTHESIA [None]
  - INSOMNIA [None]
  - DISTURBANCE IN ATTENTION [None]
  - ABDOMINAL PAIN [None]
  - MUSCULAR WEAKNESS [None]
  - AGEUSIA [None]
  - ANXIETY [None]
  - DIARRHOEA [None]
  - DEPRESSION [None]
  - LOSS OF LIBIDO [None]
  - THROMBOSIS [None]
  - VISION BLURRED [None]
  - PANIC ATTACK [None]
  - DECREASED APPETITE [None]
  - HOT FLUSH [None]
  - DYSPNOEA [None]
